FAERS Safety Report 5330490-1 (Version None)
Quarter: 2007Q2

REPORT INFORMATION
  Report Type: 
  Country: None (occurrence: None)
  Receive Date: 20070521
  Receipt Date: 20070510
  Transmission Date: 20071010
  Serious: Yes (Other)
  Sender: FDA-Public Use
  Company Number: FR-PFIZER INC-2007038726

PATIENT
  Age: 76 Year
  Sex: Male

DRUGS (3)
  1. LYRICA [Suspect]
     Indication: NEURALGIA
     Dates: start: 20061101, end: 20061101
  2. DIGOXIN [Concomitant]
  3. PERINDOPRIL ERBUMINE [Concomitant]

REACTIONS (4)
  - BALANCE DISORDER [None]
  - DELIRIUM [None]
  - FEELING DRUNK [None]
  - SOMNOLENCE [None]
